FAERS Safety Report 21838273 (Version 1)
Quarter: 2023Q1

REPORT INFORMATION
  Report Type: Report from Study
  Country: US (occurrence: US)
  Receive Date: 20230109
  Receipt Date: 20230109
  Transmission Date: 20230417
  Serious: Yes (Other)
  Sender: FDA-Public Use
  Company Number: US-ABBVIE-4261345

PATIENT
  Age: 58 Year
  Sex: Female

DRUGS (1)
  1. HUMIRA [Suspect]
     Active Substance: ADALIMUMAB
     Indication: Hidradenitis
     Dosage: CITRATE FREE
     Route: 058
     Dates: start: 20220430

REACTIONS (6)
  - Foot operation [Recovering/Resolving]
  - Migraine [Unknown]
  - Fall [Unknown]
  - Foot deformity [Unknown]
  - Joint instability [Unknown]
  - Ligament rupture [Unknown]

NARRATIVE: CASE EVENT DATE: 20221030
